FAERS Safety Report 19415800 (Version 1)
Quarter: 2021Q2

REPORT INFORMATION
  Report Type: Spontaneous
  Country: US (occurrence: US)
  Receive Date: 20210614
  Receipt Date: 20210614
  Transmission Date: 20210717
  Serious: Yes (Other)
  Sender: FDA-Public Use
  Company Number: US-SA-2021SA191405

PATIENT
  Age: 85 Year
  Sex: Male

DRUGS (9)
  1. SIMVASTATIN. [Suspect]
     Active Substance: SIMVASTATIN
  2. METOPROLOL SALT NOT SPECIFIED [Suspect]
     Active Substance: METOPROLOL
  3. INSULIN [Suspect]
     Active Substance: INSULIN NOS
  4. METHOTREXATE. [Concomitant]
     Active Substance: METHOTREXATE
  5. WARFARIN SODIUM. [Suspect]
     Active Substance: WARFARIN SODIUM
  6. FUROSEMIDE. [Suspect]
     Active Substance: FUROSEMIDE
  7. TAMSULOSIN HYDROCHLORIDE. [Suspect]
     Active Substance: TAMSULOSIN HYDROCHLORIDE
  8. GABAPENTIN. [Suspect]
     Active Substance: GABAPENTIN
  9. LISINOPRIL. [Suspect]
     Active Substance: LISINOPRIL

REACTIONS (7)
  - Peripheral swelling [Recovered/Resolved]
  - Post inflammatory pigmentation change [Recovered/Resolved]
  - Blister [Recovered/Resolved]
  - Erythema [Recovered/Resolved]
  - Skin plaque [Recovered/Resolved]
  - Pemphigoid [Recovered/Resolved]
  - Feeling hot [Recovered/Resolved]
